FAERS Safety Report 7175067-0 (Version None)
Quarter: 2010Q4

REPORT INFORMATION
  Report Type: 
  Country: None (occurrence: None)
  Receive Date: 20101220
  Receipt Date: 20100217
  Transmission Date: 20110411
  Serious: No
  Sender: FDA-Public Use
  Company Number: US-AMGEN-US393577

PATIENT

DRUGS (1)
  1. ENBREL [Suspect]
     Dosage: UNK UNK, UNK
     Dates: start: 20030801

REACTIONS (1)
  - RHEUMATOID ARTHRITIS [None]
